FAERS Safety Report 8200614-7 (Version None)
Quarter: 2012Q1

REPORT INFORMATION
  Report Type: 
  Country: None (occurrence: None)
  Receive Date: 20120312
  Receipt Date: 20120305
  Transmission Date: 20120608
  Serious: Yes (Life-Threatening, Hospitalization, Other)
  Sender: FDA-Public Use
  Company Number: US-BRISTOL-MYERS SQUIBB COMPANY-15861164

PATIENT
  Age: 62 Year
  Sex: Female
  Weight: 88 kg

DRUGS (11)
  1. AMOXICILLIN [Concomitant]
  2. LORTAB [Concomitant]
     Dosage: ELIXIR 1DF=1 TEASPOON Q6HR
  3. LASIX [Concomitant]
  4. ATIVAN [Concomitant]
     Dosage: PRN
     Route: 048
  5. LYRICA [Concomitant]
     Dosage: 1DF:150 UNITS NOS
  6. IXABEPILONE [Suspect]
     Indication: BREAST CANCER
     Dosage: LAST DOSE:21JUN11, HOLD ON:21JUN11,RESUMED ON:20JUL2011 DAY 1,8 ON 21 DAY CYCLE  CYCLE:3(31MG)
     Route: 042
     Dates: start: 20110525
  7. COMPAZINE [Concomitant]
     Dosage: PRN
     Route: 048
  8. TRIAMTERENE AND HYDROCHLOROTHIAZIDE [Concomitant]
     Dosage: 1DF=37.5/25MG
     Route: 048
  9. AMBIEN [Concomitant]
     Dosage: QHS
     Route: 048
  10. LISINOPRIL [Concomitant]
     Dosage: 1DF:10 UNITS NOS
  11. CARBOPLATIN [Suspect]
     Indication: BREAST CANCER
     Dosage: LAST DOSE:21JUN11,HOLD ON:21JUN11,RESUMED ON:20JUL2011 DAY 1,8 ON 21 DAY CYCLE CYCLE:3 (210MG)
     Route: 042
     Dates: start: 20110525

REACTIONS (5)
  - HYPONATRAEMIA [None]
  - SEPSIS [None]
  - DIARRHOEA HAEMORRHAGIC [None]
  - NEUTROPENIA [None]
  - DIZZINESS [None]
